FAERS Safety Report 7360860-1 (Version None)
Quarter: 2011Q1

REPORT INFORMATION
  Report Type: 
  Country: None (occurrence: None)
  Receive Date: 20110318
  Receipt Date: 20110310
  Transmission Date: 20110831
  Serious: Yes (Other)
  Sender: FDA-Public Use
  Company Number: US-KINGPHARMUSA00001-K201100259

PATIENT
  Sex: Male

DRUGS (1)
  1. THROMBIN-JMI [Suspect]
     Indication: CAROTID ARTERY ANEURYSM
     Dosage: UNK
     Route: 013

REACTIONS (2)
  - ANAPHYLACTIC REACTION [None]
  - INCORRECT ROUTE OF DRUG ADMINISTRATION [None]
